FAERS Safety Report 5232484-3 (Version None)
Quarter: 2007Q1

REPORT INFORMATION
  Report Type: 
  Country: None (occurrence: None)
  Receive Date: 20070202
  Receipt Date: 20070202
  Transmission Date: 20070707
  Serious: Yes (Life-Threatening)
  Sender: FDA-Public Use
  Company Number: None

PATIENT
  Age: 85 Year
  Sex: Male
  Weight: 79.8331 kg

DRUGS (2)
  1. RITUXIMAB [Suspect]
     Indication: NON-HODGKIN'S LYMPHOMA
     Dosage: 250 MG/M^2
     Dates: start: 20050815
  2. IBRITUMOMAB TIUXETAN [Suspect]
     Indication: NON-HODGKIN'S LYMPHOMA
     Dosage: 0.4 MCI/KG

REACTIONS (2)
  - B-CELL LYMPHOMA RECURRENT [None]
  - MYELODYSPLASTIC SYNDROME [None]
